FAERS Safety Report 6337950-5 (Version None)
Quarter: 2009Q3

REPORT INFORMATION
  Report Type: 
  Country: None (occurrence: None)
  Receive Date: 20090902
  Receipt Date: 20090821
  Transmission Date: 20100115
  Serious: Yes (Other)
  Sender: FDA-Public Use
  Company Number: JP-PFIZER INC-2009261095

PATIENT
  Age: 60 Year

DRUGS (15)
  1. CAMPTOSAR [Suspect]
     Indication: COLON CANCER
     Dosage: 180 MG (116.9 MG/M2)
     Route: 041
     Dates: start: 20080509, end: 20080523
  2. CAMPTOSAR [Suspect]
     Dosage: 190 MG (123.4 MG/M2)
     Route: 041
     Dates: start: 20080826, end: 20080909
  3. CAMPTOSAR [Suspect]
     Dosage: 180 MG (116.9 MG/M2)
     Route: 041
     Dates: start: 20090602, end: 20090818
  4. OXALIPLATIN [Suspect]
     Indication: COLON CANCER
     Dosage: 130 MG (84.4 MG/M2)
     Route: 041
     Dates: start: 20071002, end: 20080229
  5. FLUOROURACIL [Suspect]
     Indication: COLON CANCER
     Dosage: 600 MG (389.6 MG/M2)
     Route: 040
     Dates: start: 20071002, end: 20080523
  6. FLUOROURACIL [Suspect]
     Dosage: 3750 MG (2435.1 MG/M2), DAY 1-2
     Route: 041
     Dates: start: 20071002, end: 20080523
  7. FLUOROURACIL [Suspect]
     Dosage: 1900 MG
     Route: 013
     Dates: start: 20080711, end: 20081007
  8. FLUOROURACIL [Suspect]
     Dosage: 600 MG (389.6 MG/M2)
     Route: 040
     Dates: start: 20090602, end: 20090818
  9. FLUOROURACIL [Suspect]
     Dosage: 3700 MG (2402.6 MG/M2), DAY 1-2
     Route: 041
     Dates: start: 20090602, end: 20090818
  10. CALCIUM LEVOFOLINATE [Concomitant]
     Indication: COLON CANCER
     Dosage: 300 MG (194.8 MG/M2)
     Route: 041
     Dates: start: 20071002, end: 20090818
  11. AVASTIN [Concomitant]
     Indication: COLON CANCER
     Dosage: 300 MG
     Route: 041
     Dates: start: 20071002, end: 20080523
  12. AVASTIN [Concomitant]
     Dosage: 295 MG
     Route: 041
     Dates: start: 20090602, end: 20090818
  13. ERBITUX [Concomitant]
     Indication: COLON CANCER
     Dosage: 600 MG
     Route: 041
     Dates: start: 20081021, end: 20090519
  14. DECADRON [Concomitant]
     Indication: PREMEDICATION
     Dosage: 8 MG
     Route: 041
     Dates: start: 20071002, end: 20090818
  15. ZOFRAN [Concomitant]
     Indication: PREMEDICATION
     Dosage: 4 MG
     Route: 041
     Dates: start: 20071002, end: 20090818

REACTIONS (1)
  - NEUROPATHY PERIPHERAL [None]
